FAERS Safety Report 7903033-3 (Version None)
Quarter: 2011Q4

REPORT INFORMATION
  Report Type: 
  Country: None (occurrence: None)
  Receive Date: 20111103
  Receipt Date: 20111017
  Transmission Date: 20120403
  Serious: Yes (Other)
  Sender: FDA-Public Use
  Company Number: DSA_47924_2011

PATIENT
  Age: 76 Year
  Sex: Female

DRUGS (2)
  1. NORVASC [Concomitant]
  2. ENALAPRIL MALEATE [Suspect]
     Indication: PRODUCT USED FOR UNKNOWN INDICATION
     Dosage: 2.5 MG 1X/WEEK ORAL
     Route: 048

REACTIONS (31)
  - ASTHENIA [None]
  - DRY MOUTH [None]
  - GINGIVAL SWELLING [None]
  - HEADACHE [None]
  - INSOMNIA [None]
  - ORAL INFECTION [None]
  - SOMNOLENCE [None]
  - ANGINA PECTORIS [None]
  - FATIGUE [None]
  - NERVOUSNESS [None]
  - RASH PUSTULAR [None]
  - SWOLLEN TONGUE [None]
  - APHAGIA [None]
  - EPISTAXIS [None]
  - NIPPLE INFECTION [None]
  - VAGINAL HAEMORRHAGE [None]
  - ABDOMINAL PAIN UPPER [None]
  - DYSPEPSIA [None]
  - HYPOAESTHESIA [None]
  - NAUSEA [None]
  - RASH [None]
  - DIARRHOEA [None]
  - EAR HAEMORRHAGE [None]
  - HYPERTENSION [None]
  - BLISTER [None]
  - CONJUNCTIVAL HAEMORRHAGE [None]
  - MUSCLE SPASMS [None]
  - PRURITUS [None]
  - COUGH [None]
  - SWELLING [None]
  - VOMITING [None]
